FAERS Safety Report 15074761 (Version 1)
Quarter: 2018Q2

REPORT INFORMATION
  Report Type: Spontaneous
  Country: US (occurrence: US)
  Receive Date: 20180627
  Receipt Date: 20180627
  Transmission Date: 20180711
  Serious: Yes (Other)
  Sender: FDA-Public Use
  Company Number: US-SAOL THERAPEUTICS-0700767384

PATIENT
  Age: 64 Year
  Sex: Male

DRUGS (1)
  1. BACLOFEN. [Suspect]
     Active Substance: BACLOFEN
     Indication: MUSCLE SPASTICITY
     Dosage: 130 ?G, \DAY

REACTIONS (3)
  - Infection [Recovered/Resolved]
  - Drug withdrawal syndrome [Unknown]
  - Wound dehiscence [Unknown]

NARRATIVE: CASE EVENT DATE: 201312
